FAERS Safety Report 10538364 (Version 1)
Quarter: 2014Q4

REPORT INFORMATION
  Report Type: Not Available
  Country: CN (occurrence: CN)
  Receive Date: 20141023
  Receipt Date: 20141023
  Transmission Date: 20150529
  Serious: Yes (Other)
  Sender: FDA-Public Use
  Company Number: CN-NAPPMUNDI-GBR-2014-0023206

PATIENT
  Age: 45 Year
  Sex: Female
  Weight: 58 kg

DRUGS (2)
  1. TYLOX                              /00867901/ [Concomitant]
     Indication: CANCER PAIN
     Dosage: UNK
     Dates: start: 201404
  2. MS CONTIN [Suspect]
     Active Substance: MORPHINE SULFATE
     Indication: PAIN
     Dosage: 30 MG, DAILY
     Route: 048
     Dates: start: 20140505, end: 20140512

REACTIONS (8)
  - Pain [Recovering/Resolving]
  - Chest discomfort [Recovered/Resolved]
  - Chest discomfort [Recovering/Resolving]
  - Generalised oedema [Recovered/Resolved]
  - Generalised oedema [Recovering/Resolving]
  - Pain [Recovered/Resolved]
  - Nausea [Recovered/Resolved]
  - Nausea [Recovering/Resolving]

NARRATIVE: CASE EVENT DATE: 20140505
